FAERS Safety Report 9104897 (Version 7)
Quarter: 2015Q1

REPORT INFORMATION
  Report Type: Report from Study
  Country: AU (occurrence: AU)
  Receive Date: 20130220
  Receipt Date: 20150114
  Transmission Date: 20150721
  Serious: Yes (Hospitalization, Other)
  Sender: FDA-Public Use
  Company Number: AU-ROCHE-1188331

PATIENT
  Age: 88 Year
  Sex: Female

DRUGS (6)
  1. RANIBIZUMAB [Suspect]
     Active Substance: RANIBIZUMAB
     Route: 050
     Dates: start: 20111123
  2. OMEPRAZOLE. [Concomitant]
     Active Substance: OMEPRAZOLE
  3. RANIBIZUMAB [Suspect]
     Active Substance: RANIBIZUMAB
     Route: 050
     Dates: start: 20120604
  4. RANIBIZUMAB [Suspect]
     Active Substance: RANIBIZUMAB
     Route: 050
     Dates: start: 20100726
  5. VERAPAMIL [Concomitant]
     Active Substance: VERAPAMIL HYDROCHLORIDE
  6. RANIBIZUMAB [Suspect]
     Active Substance: RANIBIZUMAB
     Indication: AGE-RELATED MACULAR DEGENERATION
     Route: 050
     Dates: start: 20090429, end: 20130131

REACTIONS (18)
  - Chronic hepatic failure [Unknown]
  - Gastrointestinal carcinoma [Unknown]
  - Ventricular hypertrophy [Unknown]
  - Nephropathy [Unknown]
  - Liver function test abnormal [Unknown]
  - Anaemia [Recovering/Resolving]
  - Colon cancer [Unknown]
  - Aortic valve incompetence [Unknown]
  - Mitral valve incompetence [Unknown]
  - Rectal haemorrhage [Unknown]
  - Hepatic cirrhosis [Unknown]
  - Appendicitis perforated [Unknown]
  - Acute kidney injury [Unknown]
  - Diverticulum [Unknown]
  - Pulmonary hypertension [Unknown]
  - Cyst [Unknown]
  - Ascites [Recovering/Resolving]
  - Diarrhoea [Unknown]

NARRATIVE: CASE EVENT DATE: 201105
